FAERS Safety Report 8434992-0 (Version None)
Quarter: 2012Q2

REPORT INFORMATION
  Report Type: 
  Country: None (occurrence: None)
  Receive Date: 20120614
  Receipt Date: 20120612
  Transmission Date: 20120825
  Serious: No
  Sender: FDA-Public Use
  Company Number: US-PFIZER INC-2012141965

PATIENT
  Sex: Female

DRUGS (3)
  1. PAXIL CR [Concomitant]
     Indication: ANXIETY
     Dosage: UNK
  2. XANAX [Suspect]
     Indication: DEPRESSION
     Dosage: UNK, DAILY
     Dates: end: 20040722
  3. XANAX [Suspect]
     Indication: STRESS

REACTIONS (2)
  - FEELING ABNORMAL [None]
  - DEPRESSION [None]
